FAERS Safety Report 7397124-6 (Version None)
Quarter: 2011Q2

REPORT INFORMATION
  Report Type: 
  Country: None (occurrence: None)
  Receive Date: 20110406
  Receipt Date: 20110331
  Transmission Date: 20111010
  Serious: Yes (Other)
  Sender: FDA-Public Use
  Company Number: A0921360A

PATIENT
  Age: 68 Year
  Sex: Female

DRUGS (2)
  1. CORTICOSTEROIDS [Concomitant]
  2. PROMACTA [Suspect]
     Indication: IDIOPATHIC THROMBOCYTOPENIC PURPURA

REACTIONS (3)
  - EMBOLISM ARTERIAL [None]
  - STENT PLACEMENT [None]
  - RENAL INFARCT [None]
